FAERS Safety Report 15813439 (Version 1)
Quarter: 2019Q1

REPORT INFORMATION
  Report Type: Spontaneous
  Country: US (occurrence: US)
  Receive Date: 20190111
  Receipt Date: 20190111
  Transmission Date: 20190417
  Serious: Yes (Death, Hospitalization, Other)
  Sender: FDA-Public Use
  Company Number: US-ASTRAZENECA-2019SE05746

PATIENT
  Age: 17989 Day
  Sex: Male
  Weight: 54.4 kg

DRUGS (4)
  1. GABAPENTIN. [Concomitant]
     Active Substance: GABAPENTIN
     Indication: RESTLESS LEGS SYNDROME
     Route: 048
     Dates: start: 2000
  2. RAPAFLO [Concomitant]
     Active Substance: SILODOSIN
     Indication: URINARY RETENTION
     Route: 048
  3. DOXAZOSIN MESILATE [Concomitant]
     Active Substance: DOXAZOSIN MESYLATE
     Indication: URINARY RETENTION
     Route: 048
     Dates: start: 2018
  4. OMEPRAZOLE. [Suspect]
     Active Substance: OMEPRAZOLE
     Indication: GASTROOESOPHAGEAL REFLUX DISEASE
     Route: 048
     Dates: start: 2000, end: 201809

REACTIONS (16)
  - Increased viscosity of upper respiratory secretion [Unknown]
  - Blood pressure decreased [Unknown]
  - Pneumonia aspiration [Recovered/Resolved]
  - Dysuria [Recovered/Resolved]
  - Scar [Unknown]
  - Hepatitis C [Recovered/Resolved]
  - Throat irritation [Unknown]
  - White blood cell count decreased [Unknown]
  - Anaemia [Unknown]
  - Acute kidney injury [Recovered/Resolved]
  - Tonsil cancer [Unknown]
  - Loss of consciousness [Not Recovered/Not Resolved]
  - Lymphoma [Unknown]
  - Choking [Unknown]
  - Cerebrovascular accident [Fatal]
  - Dementia [Unknown]

NARRATIVE: CASE EVENT DATE: 200010
